FAERS Safety Report 4750503-5 (Version None)
Quarter: 2005Q3

REPORT INFORMATION
  Report Type: 
  Country: None (occurrence: None)
  Receive Date: 20050823
  Receipt Date: 20050804
  Transmission Date: 20060218
  Serious: Yes (Death)
  Sender: FDA-Public Use
  Company Number: US-JNJFOC-20050405827

PATIENT
  Sex: Female
  Weight: 102.51 kg

DRUGS (4)
  1. ORTHO EVRA [Suspect]
     Indication: CONTRACEPTION
     Route: 062
  2. FIBER CHOICE [Concomitant]
     Route: 065
  3. CENTRUM [Concomitant]
     Route: 065
  4. CENTRUM [Concomitant]
     Route: 065

REACTIONS (1)
  - PULMONARY EMBOLISM [None]
